FAERS Safety Report 14922998 (Version 1)
Quarter: 2018Q2

REPORT INFORMATION
  Report Type: Spontaneous
  Country: FR (occurrence: FR)
  Receive Date: 20180522
  Receipt Date: 20180522
  Transmission Date: 20180711
  Serious: Yes (Hospitalization)
  Sender: FDA-Public Use
  Company Number: PHHY2018FR003390

PATIENT
  Age: 69 Year
  Sex: Female

DRUGS (9)
  1. SOTALOL. [Concomitant]
     Active Substance: SOTALOL
     Indication: PRODUCT USED FOR UNKNOWN INDICATION
     Dosage: UNK
     Route: 065
  2. PYOSTACINE [Suspect]
     Active Substance: PRISTINAMYCIN
     Indication: LUNG INFECTION
     Dosage: 3 DF, QD
     Route: 048
     Dates: start: 20180117, end: 20180117
  3. CEFTAZIDIME MYLAN [Suspect]
     Active Substance: CEFTAZIDIME
     Indication: LUNG INFECTION
     Dosage: 3 G, QD
     Route: 042
     Dates: start: 20180113
  4. PERINDOPRIL [Concomitant]
     Active Substance: PERINDOPRIL
     Indication: PRODUCT USED FOR UNKNOWN INDICATION
     Dosage: UNK
     Route: 065
  5. ZARZIO [Suspect]
     Active Substance: FILGRASTIM
     Indication: NEUTROPENIA
     Dosage: 1 DF, UNK
     Route: 058
  6. CIPROFLOXACINE MYLAN [Suspect]
     Active Substance: CIPROFLOXACIN
     Indication: LUNG INFECTION
     Dosage: 1500 MG, QD
     Route: 048
     Dates: start: 20180113, end: 20180118
  7. RILMENIDINE [Concomitant]
     Active Substance: RILMENIDINE
     Indication: PRODUCT USED FOR UNKNOWN INDICATION
     Dosage: UNK
     Route: 065
  8. FLUCONAZOLE ARROW [Suspect]
     Active Substance: FLUCONAZOLE
     Indication: ORAL FUNGAL INFECTION
     Dosage: 200 MG, QD
     Route: 048
     Dates: start: 20180117, end: 20180117
  9. ZYVOXID [Suspect]
     Active Substance: LINEZOLID
     Indication: LUNG INFECTION
     Dosage: 2 DF, QD
     Route: 048
     Dates: start: 20180113, end: 20180117

REACTIONS (1)
  - Toxic skin eruption [Recovered/Resolved]

NARRATIVE: CASE EVENT DATE: 20180117
